FAERS Safety Report 10092820 (Version 1)
Quarter: 2014Q2

REPORT INFORMATION
  Report Type: Spontaneous
  Country: US (occurrence: US)
  Receive Date: 20140421
  Receipt Date: 20140421
  Transmission Date: 20141212
  Serious: No
  Sender: FDA-Public Use
  Company Number: US-SA-2013SA094752

PATIENT
  Age: 48 Year
  Sex: Female

DRUGS (3)
  1. ALLEGRA [Suspect]
     Route: 048
     Dates: start: 20130917, end: 20130917
  2. ZYRTEC [Concomitant]
     Dosage: FOR 3 DAYS
     Route: 065
  3. ACTIFED [Concomitant]

REACTIONS (1)
  - Sleep disorder [Recovered/Resolved]
